FAERS Safety Report 4522575-4 (Version None)
Quarter: 2004Q4

REPORT INFORMATION
  Report Type: 
  Country: None (occurrence: None)
  Receive Date: 20041207
  Receipt Date: 20041124
  Transmission Date: 20050328
  Serious: Yes (Death, Hospitalization, Other)
  Sender: FDA-Public Use
  Company Number: 2004037687

PATIENT
  Age: 17 Year
  Sex: Male

DRUGS (12)
  1. FLUCONAZOLE [Suspect]
     Indication: ILL-DEFINED DISORDER
     Route: 065
     Dates: start: 20040428, end: 20040508
  2. BUMETANIDE [Suspect]
     Indication: ILL-DEFINED DISORDER
     Route: 065
     Dates: start: 20040415, end: 20040508
  3. PIP/TAZO (PIPERACILLIN SODIUM, TAZOBACTAM SODIUM) [Suspect]
     Indication: ILL-DEFINED DISORDER
     Dates: start: 20040428, end: 20040508
  4. RITUXIMAB (RITUXIMAB) [Suspect]
     Indication: ILL-DEFINED DISORDER
     Route: 065
     Dates: start: 20040501, end: 20040508
  5. EPTACOG ALFA (EPTACOG ALFA) [Suspect]
     Indication: ILL-DEFINED DISORDER
     Route: 065
     Dates: start: 20040419, end: 20040506
  6. AMINO ACIDS (AMINO ACIDS) [Suspect]
     Indication: ILL-DEFINED DISORDER
     Dosage: INTRAVENOUS
     Route: 042
     Dates: end: 20040508
  7. OMEPRAZOLE [Concomitant]
  8. CEFTRIAXONE SODIUM [Concomitant]
  9. FUROSEMIDE [Concomitant]
  10. CORTICOSTEROIDS [Concomitant]
  11. IMMUNE GLOBULIN INTRAVENOUS (HUMAN) [Concomitant]
  12. CLAVULIN (AMOXICILLIN TRIHYDRATE, CLAVULANATE POTASSIUM) [Concomitant]

REACTIONS (20)
  - COAGULOPATHY [None]
  - COMA [None]
  - DIALYSIS [None]
  - ENCEPHALOPATHY [None]
  - EPILEPSY [None]
  - FLUID RETENTION [None]
  - HAEMORRHAGE [None]
  - HYPERAMMONAEMIA [None]
  - LACTIC ACIDOSIS [None]
  - LARGE INTESTINE PERFORATION [None]
  - LEUKOPENIA [None]
  - LIVER DISORDER [None]
  - MELAENA [None]
  - MYDRIASIS [None]
  - NERVOUS SYSTEM DISORDER [None]
  - PERITONITIS [None]
  - PLASMAPHERESIS [None]
  - PUPIL FIXED [None]
  - THROMBOCYTOPENIA [None]
  - THROMBOSIS [None]
